FAERS Safety Report 21932544 (Version 1)
Quarter: 2023Q1

REPORT INFORMATION
  Report Type: Spontaneous
  Country: GB (occurrence: GB)
  Receive Date: 20230131
  Receipt Date: 20230131
  Transmission Date: 20230418
  Serious: Yes (Death, Other)
  Sender: FDA-Public Use
  Company Number: GB-MHRA-MED-202301261621165740-SYCZR

PATIENT
  Age: 31 Year
  Sex: Female

DRUGS (7)
  1. ADCETRIS [Suspect]
     Active Substance: BRENTUXIMAB VEDOTIN
     Indication: Hodgkin^s disease refractory
     Dosage: 180 MILLIGRAM
     Route: 065
     Dates: start: 20210404
  2. ALLOPURINOL [Concomitant]
     Active Substance: ALLOPURINOL
     Indication: Supportive care
     Dosage: UNK
     Route: 065
     Dates: start: 20210409
  3. COTRIMOXAZOLE [Concomitant]
     Active Substance: SULFAMETHOXAZOLE\TRIMETHOPRIM
     Indication: Supportive care
     Dosage: UNK
     Route: 065
     Dates: start: 20210409
  4. DOMPERIDONE [Concomitant]
     Active Substance: DOMPERIDONE
     Indication: Supportive care
     Dosage: UNK
     Route: 065
     Dates: start: 20210409
  5. FUROSEMIDE [Concomitant]
     Active Substance: FUROSEMIDE
     Indication: Supportive care
     Dosage: UNK
     Route: 065
     Dates: start: 20210304
  6. OMEPRAZOLE [Concomitant]
     Active Substance: OMEPRAZOLE
     Indication: Supportive care
     Dosage: UNK
     Route: 065
     Dates: start: 20210304
  7. PALONOSETRON [Concomitant]
     Active Substance: PALONOSETRON
     Indication: Supportive care
     Dosage: UNK
     Route: 065
     Dates: start: 20210304

REACTIONS (1)
  - Hyperbilirubinaemia [Fatal]

NARRATIVE: CASE EVENT DATE: 20210421
